FAERS Safety Report 25181135 (Version 3)
Quarter: 2025Q2

REPORT INFORMATION
  Report Type: Report from Study
  Country: ES (occurrence: ES)
  Receive Date: 20250410
  Receipt Date: 20250417
  Transmission Date: 20250717
  Serious: Yes (Other)
  Sender: ABBVIE
  Company Number: ES-ABBVIE-6213996

PATIENT
  Age: 68 Year
  Sex: Female

DRUGS (1)
  1. FOSCARBIDOPA\FOSLEVODOPA [Suspect]
     Active Substance: FOSCARBIDOPA\FOSLEVODOPA
     Indication: Parkinson^s disease
     Route: 058
     Dates: start: 20241113

REACTIONS (4)
  - Infusion site nodule [Recovering/Resolving]
  - Injection site abscess [Recovering/Resolving]
  - Infusion site infection [Recovering/Resolving]
  - Infusion site induration [Recovering/Resolving]

NARRATIVE: CASE EVENT DATE: 20250328
